FAERS Safety Report 25178792 (Version 2)
Quarter: 2025Q2

REPORT INFORMATION
  Report Type: Report from Study
  Country: US (occurrence: US)
  Receive Date: 20250409
  Receipt Date: 20250521
  Transmission Date: 20250716
  Serious: No
  Sender: ABBVIE
  Company Number: US-ABBVIE-6213675

PATIENT
  Age: 83 Year
  Sex: Female
  Weight: 52.163 kg

DRUGS (13)
  1. CREON [Suspect]
     Active Substance: PANCRELIPASE AMYLASE\PANCRELIPASE LIPASE\PANCRELIPASE PROTEASE
     Indication: Product used for unknown indication
     Route: 048
     Dates: start: 2018
  2. CREON [Suspect]
     Active Substance: PANCRELIPASE AMYLASE\PANCRELIPASE LIPASE\PANCRELIPASE PROTEASE
     Indication: Product used for unknown indication
     Route: 048
     Dates: start: 2012, end: 2018
  3. LATANOPROST [Concomitant]
     Active Substance: LATANOPROST
     Indication: Ocular discomfort
  4. ATROPINE [Concomitant]
     Active Substance: ATROPINE
     Indication: Diarrhoea
  5. Nyal low dose aspirin [Concomitant]
     Indication: Anticoagulant therapy
  6. REFRESH CLASSIC [Concomitant]
     Active Substance: POLYVINYL ALCOHOL\POVIDONE
     Indication: Eye lubrication therapy
  7. METOPROLOL TARTRATE [Concomitant]
     Active Substance: METOPROLOL TARTRATE
     Indication: Heart rate abnormal
  8. LOPERAMIDE [Concomitant]
     Active Substance: LOPERAMIDE
     Indication: Diarrhoea
  9. LUTEIN [Concomitant]
     Active Substance: LUTEIN
     Indication: Eye disorder
  10. DIETARY SUPPLEMENT [Concomitant]
     Active Substance: DIETARY SUPPLEMENT
     Indication: Brain fog
  11. TYLENOL [Concomitant]
     Active Substance: ACETAMINOPHEN
     Indication: Gout
  12. CALCIUM CITRATE [Concomitant]
     Active Substance: CALCIUM CITRATE
     Indication: Mineral supplementation
  13. OMEPRAZOLE [Concomitant]
     Active Substance: OMEPRAZOLE
     Indication: Gastric pH decreased

REACTIONS (3)
  - Hypophagia [Recovering/Resolving]
  - Weight decreased [Not Recovered/Not Resolved]
  - Osteoporosis [Not Recovered/Not Resolved]

NARRATIVE: CASE EVENT DATE: 20170101
